FAERS Safety Report 4301978-7 (Version None)
Quarter: 2004Q1

REPORT INFORMATION
  Report Type: 
  Country: None (occurrence: None)
  Receive Date: 20040220
  Receipt Date: 20040210
  Transmission Date: 20041129
  Serious: Yes (Hospitalization)
  Sender: FDA-Public Use
  Company Number: US-JNJFOC-20040202455

PATIENT
  Age: 10 Year
  Sex: Female
  Weight: 21.3191 kg

DRUGS (2)
  1. CONCERTA [Suspect]
     Indication: ATTENTION DEFICIT/HYPERACTIVITY DISORDER
     Dosage: ORAL;  54 MG, 1 IN 1 DAY, ORAL
     Route: 048
     Dates: start: 20010201
  2. METHYLPHENIDATE HCL [Concomitant]

REACTIONS (5)
  - CHOLELITHIASIS [None]
  - DECREASED APPETITE [None]
  - EATING DISORDER [None]
  - INSOMNIA [None]
  - WEIGHT GAIN POOR [None]
